FAERS Safety Report 7570153-5 (Version None)
Quarter: 2011Q2

REPORT INFORMATION
  Report Type: 
  Country: None (occurrence: None)
  Receive Date: 20110620
  Receipt Date: 20110609
  Transmission Date: 20111010
  Serious: Yes (Other)
  Sender: FDA-Public Use
  Company Number: ACO_25132_2011

PATIENT
  Age: 46 Year
  Sex: Female

DRUGS (4)
  1. RITALIN [Concomitant]
  2. PROZAC [Concomitant]
  3. AMPYRA [Suspect]
     Indication: GAIT DISTURBANCE
     Dosage: 10 MG, Q12 HRS
     Dates: start: 20110121
  4. BACLOFEN [Concomitant]

REACTIONS (4)
  - OVARIAN CYST [None]
  - RENAL DISORDER [None]
  - BILIARY NEOPLASM [None]
  - GASTROINTESTINAL DISORDER [None]
